FAERS Safety Report 4658678-3 (Version None)
Quarter: 2005Q2

REPORT INFORMATION
  Report Type: 
  Country: None (occurrence: None)
  Receive Date: 20050510
  Receipt Date: 20050510
  Transmission Date: 20051028
  Serious: Yes (Hospitalization)
  Sender: FDA-Public Use
  Company Number: None

PATIENT
  Age: 56 Year
  Sex: Male
  Weight: 97.977 kg

DRUGS (7)
  1. SIMVASTATIN [Suspect]
     Indication: HYPERCHOLESTEROLAEMIA
     Dosage: 40MG  QHS   ORAL
     Route: 048
     Dates: start: 20041116, end: 20050222
  2. HUMULIN N [Concomitant]
  3. INJ NOVOLIN N [Concomitant]
  4. DOCUSATE NA [Concomitant]
  5. PSYLLIUM SF [Concomitant]
  6. ENALAPRIL MALEATE [Concomitant]
  7. GABAPENTIN [Concomitant]

REACTIONS (2)
  - PSYCHOMOTOR HYPERACTIVITY [None]
  - THINKING ABNORMAL [None]
